FAERS Safety Report 15968716 (Version 1)
Quarter: 2019Q1

REPORT INFORMATION
  Report Type: Spontaneous
  Country: US (occurrence: US)
  Receive Date: 20190215
  Receipt Date: 20190215
  Transmission Date: 20190418
  Serious: No
  Sender: FDA-Public Use
  Company Number: US-JNJFOC-20190141000

PATIENT
  Age: 66 Year
  Sex: Male

DRUGS (1)
  1. INVEGA SUSTENNA [Suspect]
     Active Substance: PALIPERIDONE PALMITATE
     Indication: SCHIZOPHRENIA
     Route: 030
     Dates: start: 201809

REACTIONS (2)
  - Musculoskeletal stiffness [Not Recovered/Not Resolved]
  - Dystonia [Not Recovered/Not Resolved]

NARRATIVE: CASE EVENT DATE: 2018
